FAERS Safety Report 19394796 (Version 2)
Quarter: 2021Q2

REPORT INFORMATION
  Report Type: Report from Study
  Country: KR (occurrence: KR)
  Receive Date: 20210609
  Receipt Date: 20210610
  Transmission Date: 20210717
  Serious: Yes (Other)
  Sender: FDA-Public Use
  Company Number: KR-NALPROPION PHARMACEUTICALS INC.-2021-013251

PATIENT

DRUGS (6)
  1. CONTRAVE [Suspect]
     Active Substance: BUPROPION HYDROCHLORIDE\NALTREXONE HYDROCHLORIDE
     Indication: PRODUCT USED FOR UNKNOWN INDICATION
     Dosage: 1TAB/DAY(ONCE IN THE MORNING)
     Route: 065
     Dates: start: 20191017, end: 20191023
  2. CONTRAVE [Suspect]
     Active Substance: BUPROPION HYDROCHLORIDE\NALTREXONE HYDROCHLORIDE
     Dosage: 2 TABLET EVERY MORNING, 2 TABLET EVERY EVENING
     Route: 065
     Dates: start: 20191107, end: 20191112
  3. SYNTHYROXINE [Concomitant]
     Active Substance: LEVOTHYROXINE SODIUM
     Indication: HYPOTHYROIDISM
     Dosage: 1TAB, ONCE A DAY
     Route: 048
     Dates: start: 20131230
  4. CONTRAVE [Suspect]
     Active Substance: BUPROPION HYDROCHLORIDE\NALTREXONE HYDROCHLORIDE
     Dosage: 1 TABLET EVERY MORNING, 1 TABLET EVERY EVENING
     Route: 065
     Dates: start: 20191024, end: 20191030
  5. CONTRAVE [Suspect]
     Active Substance: BUPROPION HYDROCHLORIDE\NALTREXONE HYDROCHLORIDE
     Dosage: 1 TABLET EVERY MORNING,1 TABLET EVERY EVENING
     Route: 065
     Dates: start: 20191113, end: 20191126
  6. CONTRAVE [Suspect]
     Active Substance: BUPROPION HYDROCHLORIDE\NALTREXONE HYDROCHLORIDE
     Dosage: 3TABS/DAY(2TAB?DAY TIME,1TAB?NIGHT TIME)
     Route: 065
     Dates: start: 20191031, end: 20191106

REACTIONS (5)
  - Venous angioma of brain [Not Recovered/Not Resolved]
  - Dizziness [Recovered/Resolved]
  - Nausea [Recovered/Resolved]
  - Headache [Recovered/Resolved]
  - Vomiting [Recovered/Resolved]

NARRATIVE: CASE EVENT DATE: 20191126
